FAERS Safety Report 10251004 (Version 1)
Quarter: 2014Q2

REPORT INFORMATION
  Report Type: Report from Study
  Country: DE (occurrence: DE)
  Receive Date: 20140620
  Receipt Date: 20140620
  Transmission Date: 20141212
  Serious: Yes (Hospitalization)
  Sender: FDA-Public Use
  Company Number: PHHY2014DE074525

PATIENT
  Age: 80 Year
  Sex: Male
  Weight: 88 kg

DRUGS (9)
  1. ULTIBRO BREEZHALER [Suspect]
     Indication: CHRONIC OBSTRUCTIVE PULMONARY DISEASE
     Dosage: 1 DF, QD
     Route: 055
     Dates: start: 20140218, end: 20140428
  2. NO TREATMENT RECEIVED [Suspect]
  3. ALLOPURINOL [Concomitant]
  4. BERODUAL N [Concomitant]
  5. CELEBREX [Concomitant]
  6. DELMUNO [Concomitant]
  7. NAFTI [Concomitant]
  8. PANTOZOL [Concomitant]
  9. SPIRO COMP [Concomitant]

REACTIONS (1)
  - Colon cancer [Unknown]
